FAERS Safety Report 7949456-8 (Version None)
Quarter: 2011Q4

REPORT INFORMATION
  Report Type: 
  Country: None (occurrence: None)
  Receive Date: 20111130
  Receipt Date: 20111123
  Transmission Date: 20120403
  Serious: Yes (Other)
  Sender: FDA-Public Use
  Company Number: GB-GLAXOSMITHKLINE-B0765089A

PATIENT
  Sex: Female

DRUGS (2)
  1. PNEUMONIA VACCINE [Suspect]
     Indication: PROPHYLAXIS
     Dosage: 1INJ SINGLE DOSE
     Route: 065
  2. FLUTICASONE PROPIONATE/SALMETEROL [Suspect]
     Indication: ASTHMA
     Route: 055

REACTIONS (1)
  - PNEUMONIA [None]
